FAERS Safety Report 4447485-2 (Version None)
Quarter: 2004Q3

REPORT INFORMATION
  Report Type: 
  Country: None (occurrence: None)
  Receive Date: 20040823
  Receipt Date: 20040508
  Transmission Date: 20050211
  Serious: No
  Sender: FDA-Public Use
  Company Number: PHEH2004US05162

PATIENT
  Sex: Female

DRUGS (1)
  1. ZELNORM [Suspect]
     Indication: IRRITABLE BOWEL SYNDROME
     Dosage: ORAL
     Route: 048

REACTIONS (6)
  - CONSTIPATION [None]
  - DEFAECATION URGENCY [None]
  - DRUG INEFFECTIVE [None]
  - FLATULENCE [None]
  - INTESTINAL FUNCTIONAL DISORDER [None]
  - LOOSE STOOLS [None]
